FAERS Safety Report 9771760 (Version 4)
Quarter: 2014Q2

REPORT INFORMATION
  Report Type: Report from Study
  Country: US (occurrence: US)
  Receive Date: 20131219
  Receipt Date: 20140602
  Transmission Date: 20141212
  Serious: Yes (Hospitalization)
  Sender: FDA-Public Use
  Company Number: US-BRISTOL-MYERS SQUIBB COMPANY-19864784

PATIENT
  Age: 44 Year
  Sex: Female

DRUGS (8)
  1. CARBOPLATIN [Suspect]
     Indication: BREAST CANCER
     Dosage: 1DF=AUC 6 ON DAY3 OF EVERY 21 DAYS CYCLE
     Route: 042
     Dates: start: 20131024
  2. PACLITAXEL [Suspect]
     Indication: BREAST CANCER
     Dosage: ON DAY3 OF EVERY 21 DAY CYCLE
     Route: 042
     Dates: start: 20131024
  3. ALOXI [Concomitant]
     Indication: PROPHYLAXIS
  4. BENADRYL [Concomitant]
     Indication: PROPHYLAXIS
     Dates: start: 20131024, end: 20131024
  5. PEPCID [Concomitant]
     Indication: PROPHYLAXIS
     Dates: start: 20131024, end: 20131024
  6. DECADRON [Concomitant]
     Indication: PROPHYLAXIS
     Dates: start: 20131024, end: 20131024
  7. BIMATOPROST [Concomitant]
     Indication: HYPOTRICHOSIS
     Dates: start: 20130910
  8. DENOSUMAB [Concomitant]
     Indication: BONE DISORDER
     Route: 058
     Dates: start: 20131024

REACTIONS (1)
  - Recall phenomenon [Recovered/Resolved]
